FAERS Safety Report 10536211 (Version 2)
Quarter: 2014Q4

REPORT INFORMATION
  Report Type: Spontaneous
  Country: US (occurrence: US)
  Receive Date: 20141022
  Receipt Date: 20141022
  Transmission Date: 20150529
  Serious: No
  Sender: FDA-Public Use
  Company Number: US-RECKITT BENCKISER PHARMACEUTICAL, INC-RB-66347-2014

PATIENT

DRUGS (5)
  1. CYMBALTA [Concomitant]
     Active Substance: DULOXETINE HYDROCHLORIDE
     Indication: DEPRESSION
     Dosage: DOSING DETAILS UNKNOWN
     Route: 048
  2. SUBOXONE [Suspect]
     Active Substance: BUPRENORPHINE HYDROCHLORIDE\NALOXONE HYDROCHLORIDE
     Dosage: SUBOXONE FILM
     Route: 060
     Dates: start: 201401
  3. SUBOXONE [Suspect]
     Active Substance: BUPRENORPHINE HYDROCHLORIDE\NALOXONE HYDROCHLORIDE
     Dosage: SUBOXONE FILM; TAKING 8-16 MG AS NEEDED, USUALLY 10 MG DAILY, CUTTING, TAKING PIECES THROUGHOUT DAY
     Route: 060
     Dates: start: 20140303
  4. SUBOXONE [Suspect]
     Active Substance: BUPRENORPHINE HYDROCHLORIDE\NALOXONE HYDROCHLORIDE
     Dosage: SUBOXONE FILM; CUTTING, ACCIDENTLY SWALLOWED 1/3 OF 8 MG FILM STRIP
     Route: 048
     Dates: start: 20140414, end: 20140414
  5. SUBOXONE [Suspect]
     Active Substance: BUPRENORPHINE HYDROCHLORIDE\NALOXONE HYDROCHLORIDE
     Indication: DRUG DEPENDENCE
     Dosage: SUBOXONE FILM
     Route: 060
     Dates: start: 201401, end: 201401

REACTIONS (9)
  - Wrong technique in drug usage process [Unknown]
  - Incorrect route of drug administration [Recovered/Resolved]
  - Asthenia [Not Recovered/Not Resolved]
  - Flashback [Not Recovered/Not Resolved]
  - Hot flush [Not Recovered/Not Resolved]
  - Crying [Not Recovered/Not Resolved]
  - Abasia [Recovered/Resolved]
  - Nightmare [Not Recovered/Not Resolved]
  - Tremor [Not Recovered/Not Resolved]

NARRATIVE: CASE EVENT DATE: 201401
